FAERS Safety Report 9354170 (Version 1)
Quarter: 2013Q2

REPORT INFORMATION
  Report Type: Report from Study
  Country: JP (occurrence: JP)
  Receive Date: 20130618
  Receipt Date: 20130618
  Transmission Date: 20140414
  Serious: Yes (Other)
  Sender: FDA-Public Use
  Company Number: JP-VERTEX PHARMACEUTICALS INC-AE-2012-011963

PATIENT
  Age: 56 Year
  Sex: Female

DRUGS (7)
  1. VX-950 (TELAPREVIR) [Suspect]
     Indication: CHRONIC HEPATITIS C
     Dosage: 1500 MG, QD
     Route: 048
     Dates: start: 20120612
  2. RIBAVIRIN [Suspect]
     Indication: CHRONIC HEPATITIS C
     Dosage: 600 MG, QD
     Route: 048
     Dates: start: 20120612
  3. PEGINTERFERON ALFA-2B [Suspect]
     Indication: CHRONIC HEPATITIS C
     Dosage: 1.5 ?G/KG, QW
     Route: 058
     Dates: start: 20120612
  4. TRANSAMIN [Concomitant]
     Dosage: 750 MG, QD
     Route: 048
     Dates: end: 20120625
  5. PL [Concomitant]
     Dosage: 3 G, QD
     Route: 048
     Dates: end: 20120617
  6. MEDICON [Concomitant]
     Dosage: 0.9 G, QD
     Route: 048
     Dates: start: 20120615, end: 20120624
  7. ASTOMIN [Concomitant]
     Dosage: 30 MG, QD
     Route: 048
     Dates: end: 20120617

REACTIONS (1)
  - Neutrophil count decreased [Not Recovered/Not Resolved]
